FAERS Safety Report 7915575-5 (Version None)
Quarter: 2011Q4

REPORT INFORMATION
  Report Type: 
  Country: None (occurrence: None)
  Receive Date: 20111115
  Receipt Date: 20110810
  Transmission Date: 20120403
  Serious: Yes (Hospitalization)
  Sender: FDA-Public Use
  Company Number: US-BRISTOL-MYERS SQUIBB COMPANY-15941990

PATIENT
  Age: 79 Year
  Sex: Female

DRUGS (1)
  1. YERVOY [Suspect]
     Dosage: 4 INF
     Dates: start: 20110422

REACTIONS (1)
  - DIARRHOEA [None]
